FAERS Safety Report 10219023 (Version 1)
Quarter: 2014Q2

REPORT INFORMATION
  Report Type: Report from Study
  Country: US (occurrence: US)
  Receive Date: 20140605
  Receipt Date: 20140605
  Transmission Date: 20141212
  Serious: Yes (Other)
  Sender: FDA-Public Use
  Company Number: US-PFIZER INC-2014149520

PATIENT
  Age: 50 Year
  Sex: Female

DRUGS (4)
  1. MS CONTIN [Suspect]
     Indication: INTERVERTEBRAL DISC DISPLACEMENT
     Dosage: 200 MG, 2X/DAY
  2. MS CONTIN [Suspect]
     Indication: HEADACHE
  3. OXYCONTIN [Suspect]
     Indication: INTERVERTEBRAL DISC DISPLACEMENT
     Dosage: 320 MG, 3X/DAY
     Route: 048
  4. OXYCONTIN [Suspect]
     Indication: HEADACHE
     Dosage: UNK
     Route: 048
     Dates: start: 200411

REACTIONS (5)
  - Delirium tremens [Unknown]
  - Mental impairment [Unknown]
  - Feeling abnormal [Unknown]
  - Euphoric mood [Unknown]
  - Drug ineffective [Unknown]
